FAERS Safety Report 17943843 (Version 1)
Quarter: 2020Q2

REPORT INFORMATION
  Report Type: Report from Study
  Country: US (occurrence: US)
  Receive Date: 20200625
  Receipt Date: 20200625
  Transmission Date: 20200714
  Serious: Yes (Other)
  Sender: FDA-Public Use
  Company Number: US-ROCHE-2630192

PATIENT
  Sex: Female

DRUGS (2)
  1. ACTEMRA [Suspect]
     Active Substance: TOCILIZUMAB
     Indication: NEOPLASM
  2. ACTEMRA [Suspect]
     Active Substance: TOCILIZUMAB
     Indication: ARTHROPATHY
     Dosage: INJECT 162MG SUBCUTANEOUSLY EVERY WEEK
     Route: 058

REACTIONS (3)
  - Deafness [Unknown]
  - Off label use [Unknown]
  - Intentional product use issue [Unknown]
